FAERS Safety Report 23038691 (Version 1)
Quarter: 2023Q4

REPORT INFORMATION
  Report Type: Spontaneous
  Country: IT (occurrence: None)
  Receive Date: 20231006
  Receipt Date: 20231006
  Transmission Date: 20240110
  Serious: Yes (Hospitalization, Other)
  Sender: FDA-Public Use
  Company Number: 2023A222225

PATIENT
  Sex: Male

DRUGS (3)
  1. ROSUVASTATIN [Suspect]
     Active Substance: ROSUVASTATIN
     Indication: Product used for unknown indication
     Dosage: 20 MG20.0MG UNKNOWN
  2. EZETIMIBE [Suspect]
     Active Substance: EZETIMIBE
     Indication: Product used for unknown indication
     Dosage: 10 MG10.0MG UNKNOWN
  3. LEQVIO [Suspect]
     Active Substance: INCLISIRAN SODIUM
     Indication: Dyslipidaemia
     Dosage: 284 MG284.0MG UNKNOWN
     Dates: start: 20230615

REACTIONS (1)
  - Cerebrovascular accident [Unknown]
